FAERS Safety Report 15165469 (Version 2)
Quarter: 2018Q3

REPORT INFORMATION
  Report Type: Spontaneous
  Country: JP (occurrence: JP)
  Receive Date: 20180719
  Receipt Date: 20180802
  Transmission Date: 20181010
  Serious: Yes (Other)
  Sender: FDA-Public Use
  Company Number: JP-JNJFOC-20180602995

PATIENT
  Age: 7 Decade
  Sex: Male

DRUGS (12)
  1. DORAL [Suspect]
     Active Substance: QUAZEPAM
     Indication: PRODUCT USED FOR UNKNOWN INDICATION
     Route: 048
     Dates: start: 20180507, end: 20180526
  2. LOSIZOPILON [Concomitant]
     Active Substance: ZOTEPINE
     Route: 048
     Dates: start: 20180604, end: 201806
  3. LONASEN [Concomitant]
     Active Substance: BLONANSERIN
     Route: 048
     Dates: start: 20180606, end: 201806
  4. XEPLION [Suspect]
     Active Substance: PALIPERIDONE PALMITATE
     Indication: SCHIZOPHRENIA
     Route: 030
     Dates: start: 20180524, end: 20180524
  5. HIRNAMIN [Suspect]
     Active Substance: LEVOMEPROMAZINE
     Indication: PRODUCT USED FOR UNKNOWN INDICATION
     Route: 065
     Dates: start: 20180507, end: 201805
  6. XEPLION [Suspect]
     Active Substance: PALIPERIDONE PALMITATE
     Indication: SCHIZOPHRENIA
     Route: 030
     Dates: start: 20180628, end: 20180628
  7. RISPERDAL [Suspect]
     Active Substance: RISPERIDONE
     Indication: SCHIZOPHRENIA
     Route: 048
  8. RISPERDAL [Suspect]
     Active Substance: RISPERIDONE
     Indication: SCHIZOPHRENIA
     Route: 048
     Dates: start: 20180507, end: 20180526
  9. HIRNAMIN [Suspect]
     Active Substance: LEVOMEPROMAZINE
     Indication: PRODUCT USED FOR UNKNOWN INDICATION
     Route: 065
     Dates: start: 20180523, end: 20180526
  10. LOSIZOPILON [Concomitant]
     Active Substance: ZOTEPINE
     Route: 048
     Dates: start: 20180618
  11. LONASEN [Concomitant]
     Active Substance: BLONANSERIN
     Route: 048
     Dates: start: 201806
  12. XEPLION [Suspect]
     Active Substance: PALIPERIDONE PALMITATE
     Indication: SCHIZOPHRENIA
     Route: 030
     Dates: start: 20180726

REACTIONS (2)
  - Blood creatine phosphokinase increased [Recovered/Resolved]
  - Psychiatric symptom [Unknown]

NARRATIVE: CASE EVENT DATE: 20180526
